FAERS Safety Report 21479342 (Version 1)
Quarter: 2022Q4

REPORT INFORMATION
  Report Type: Spontaneous
  Country: US (occurrence: None)
  Receive Date: 20221018
  Receipt Date: 20221018
  Transmission Date: 20230113
  Serious: No
  Sender: FDA-Public Use
  Company Number: None

PATIENT
  Age: 62 Year
  Sex: Female
  Weight: 50.35 kg

DRUGS (1)
  1. AMPHETAMINE SULFATE\DEXTROAMPHETAMINE [Suspect]
     Active Substance: AMPHETAMINE SULFATE\DEXTROAMPHETAMINE
     Indication: Lipoedema
     Dosage: FREQUENCY : DAILY;?
     Route: 048

REACTIONS (3)
  - Palpitations [None]
  - Agitation [None]
  - Tachycardia [None]

NARRATIVE: CASE EVENT DATE: 20191030
